FAERS Safety Report 9951620 (Version 1)
Quarter: 2014Q1

REPORT INFORMATION
  Report Type: Report from Study
  Country: US (occurrence: US)
  Receive Date: 20140304
  Receipt Date: 20140304
  Transmission Date: 20141002
  Serious: No
  Sender: FDA-Public Use
  Company Number: US-ABBVIE-13P-163-1071136-00

PATIENT
  Age: 52 Year
  Sex: Female

DRUGS (18)
  1. HUMIRA [Suspect]
     Indication: RHEUMATOID ARTHRITIS
     Dates: start: 20130121
  2. CYMBALTA [Suspect]
     Indication: PRODUCT USED FOR UNKNOWN INDICATION
  3. CYMBALTA [Suspect]
     Dates: end: 20130305
  4. POTASSIUM [Concomitant]
     Indication: PRODUCT USED FOR UNKNOWN INDICATION
  5. CLONAZEPAM [Concomitant]
     Indication: INSOMNIA
     Dosage: AT BEDTIME
  6. METOPROLOL [Concomitant]
     Indication: HYPERTENSION
  7. FOLIC ACID [Concomitant]
     Indication: PRODUCT USED FOR UNKNOWN INDICATION
  8. NIASPAN [Concomitant]
     Indication: BLOOD CHOLESTEROL INCREASED
  9. EFFIENT [Concomitant]
     Indication: ANTICOAGULANT THERAPY
  10. CRESTOR [Concomitant]
     Indication: BLOOD CHOLESTEROL INCREASED
  11. PREDNISONE [Concomitant]
     Indication: PRODUCT USED FOR UNKNOWN INDICATION
  12. ASPIRIN [Concomitant]
     Indication: CARDIOVASCULAR EVENT PROPHYLAXIS
  13. VITAMIN C [Concomitant]
     Indication: PRODUCT USED FOR UNKNOWN INDICATION
  14. VIT D [Concomitant]
     Indication: PRODUCT USED FOR UNKNOWN INDICATION
  15. VICODIN [Concomitant]
     Indication: PAIN
  16. RANEXA [Concomitant]
     Indication: DRUG THERAPY
  17. CILOSTAZOL [Concomitant]
     Indication: PRODUCT USED FOR UNKNOWN INDICATION
  18. FLUDROCORTISONE [Concomitant]
     Indication: PRODUCT USED FOR UNKNOWN INDICATION

REACTIONS (3)
  - Diarrhoea [Recovered/Resolved]
  - Arthralgia [Unknown]
  - Vomiting [Recovered/Resolved]
